FAERS Safety Report 4360360-7 (Version None)
Quarter: 2004Q2

REPORT INFORMATION
  Report Type: 
  Country: None (occurrence: None)
  Receive Date: 20040519
  Receipt Date: 20040512
  Transmission Date: 20050107
  Serious: Yes (Other)
  Sender: FDA-Public Use
  Company Number: US-BRISTOL-MYERS SQUIBB COMPANY-12585147

PATIENT

DRUGS (1)
  1. TEQUIN [Suspect]
     Indication: UPPER RESPIRATORY TRACT INFECTION
     Route: 048

REACTIONS (1)
  - HYPOGLYCAEMIA [None]
